FAERS Safety Report 14759754 (Version 1)
Quarter: 2018Q2

REPORT INFORMATION
  Report Type: Report from Study
  Country: US (occurrence: US)
  Receive Date: 20180413
  Receipt Date: 20180413
  Transmission Date: 20180711
  Serious: Yes (Death)
  Sender: FDA-Public Use
  Company Number: US-PFIZER INC-2018148335

PATIENT
  Age: 17 Year
  Sex: Female

DRUGS (6)
  1. G-CSF [Concomitant]
     Active Substance: GRANULOCYTE COLONY-STIMULATING FACTOR NOS
     Indication: ACUTE MYELOID LEUKAEMIA
     Dosage: 5 UG/KG, DAILY  (5 MCG/KG/DAY SQ, START DAY 7 AND CONTINUE UNTIL ANC}500/UL)
     Route: 058
  2. VINORELBINE TARTRATE. [Suspect]
     Active Substance: VINORELBINE TARTRATE
     Indication: ACUTE MYELOID LEUKAEMIA
     Dosage: 20 MG/M2, CYCLIC (20 MG/M2/DAY I.V. PUSH, ON DAYS 0, 7, 14, 21; 1 CYCLE)
     Route: 042
  3. GEMCITABINE HYDROCHLORIDE. [Suspect]
     Active Substance: GEMCITABINE HYDROCHLORIDE
     Indication: ACUTE MYELOID LEUKAEMIA
     Dosage: UNK, CYCLIC (10 MG/M2/MIN CONTINUOUS I.V. INFUSION OVER 6 H, TOTAL DOSE 3600 MG/M2/DOSE;ON DAY 7)
     Route: 042
  4. DEXAMETHASONE. [Suspect]
     Active Substance: DEXAMETHASONE
     Indication: ACUTE MYELOID LEUKAEMIA
     Dosage: 45 MG/M2, CYCLIC (45 MG/M2/DAY P.O. OR IV DIVIDED TID, ON DAYS 7-4; 1 CYCLE)
  5. THIOTEPA. [Suspect]
     Active Substance: THIOTEPA
     Indication: ACUTE MYELOID LEUKAEMIA
     Dosage: 15 MG/M2, CYCLIC (15 MG/M2/DAY I.V. OVER 4 H, ON DAY 2; 1 CYCLE)
     Route: 042
  6. TOPOTECAN HYDROCHLORIDE. [Suspect]
     Active Substance: TOPOTECAN HYDROCHLORIDE
     Indication: ACUTE MYELOID LEUKAEMIA
     Dosage: 1 MG/M2, CYCLIC(1 MG/M2/DAY AS A CONTINUOUS I.V. INFUSION, ON DAYS 1-5; 1 CYCLE)
     Route: 042

REACTIONS (2)
  - Acute respiratory distress syndrome [Fatal]
  - Sepsis [Fatal]
